FAERS Safety Report 8847202 (Version 1)
Quarter: 2012Q4

REPORT INFORMATION
  Report Type: 
  Country: US (occurrence: US)
  Receive Date: 20121018
  Receipt Date: 20121018
  Transmission Date: 20130627
  Serious: Yes (Other)
  Sender: FDA-Public Use
  Company Number: US-JNJFOC-20121008225

PATIENT

DRUGS (8)
  1. DOXORUBICIN [Suspect]
     Indication: HODGKIN^S DISEASE
     Dosage: four cycles (Group 1) or six cycles (Group 2)
     Route: 042
  2. BLEOMYCIN [Suspect]
     Indication: HODGKIN^S DISEASE
     Dosage: four cycles (Group 1) or six cycles (Group 2)
     Route: 065
  3. VINBLASTINE [Suspect]
     Indication: HODGKIN^S DISEASE
     Dosage: four cycles (Group 1) or six cycles (Group 2)
     Route: 065
  4. CYCLOPHOSPHAMIDE [Suspect]
     Indication: HODGKIN^S DISEASE
     Dosage: four cycles (Group 1) or six cycles (Group 2)
     Route: 065
  5. VINCRISTINE [Suspect]
     Indication: HODGKIN^S DISEASE
     Dosage: four cycles (Group 1) or six cycles (Group 2)
     Route: 065
  6. PROCARBAZINE [Suspect]
     Indication: HODGKIN^S DISEASE
     Dosage: four cycles (Group 1) or six cycles (Group 2)
     Route: 065
  7. PREDNISONE [Suspect]
     Indication: HODGKIN^S DISEASE
     Dosage: four cycles (Group 1) or six cycles (Group 2)
     Route: 065
  8. RADIOTHERAPY [Suspect]
     Indication: HODGKIN^S DISEASE
     Dosage: once daily fractions of 1.75Gy, a dose of 21 Gy
     Route: 065

REACTIONS (2)
  - Lymphoma [Unknown]
  - Hodgkin^s disease recurrent [Unknown]
